FAERS Safety Report 7032823-7 (Version None)
Quarter: 2010Q4

REPORT INFORMATION
  Report Type: 
  Country: None (occurrence: None)
  Receive Date: 20101007
  Receipt Date: 20100927
  Transmission Date: 20110411
  Serious: Yes (Other)
  Sender: FDA-Public Use
  Company Number: SG-JNJFOC-20100908137

PATIENT
  Sex: Female
  Weight: 50 kg

DRUGS (5)
  1. REMICADE [Suspect]
     Indication: RHEUMATOID ARTHRITIS
     Route: 042
  2. ARCOXIA [Concomitant]
     Indication: ARTHRITIS
     Route: 048
  3. METHOTREXATE [Concomitant]
     Indication: ARTHRITIS
     Route: 048
  4. COZAAR [Concomitant]
     Indication: HYPERTENSION
     Route: 048
  5. FOLATE [Concomitant]
     Route: 048

REACTIONS (4)
  - ANGIOEDEMA [None]
  - CONJUNCTIVITIS [None]
  - INFUSION RELATED REACTION [None]
  - RASH MACULAR [None]
